FAERS Safety Report 7949566-5 (Version None)
Quarter: 2011Q4

REPORT INFORMATION
  Report Type: 
  Country: None (occurrence: None)
  Receive Date: 20111130
  Receipt Date: 20111122
  Transmission Date: 20120403
  Serious: Yes (Hospitalization)
  Sender: FDA-Public Use
  Company Number: JP-AMGEN-JPNCT2011063237

PATIENT
  Age: 70 Year
  Sex: Male

DRUGS (2)
  1. BLINDED PLACEBO [Suspect]
     Indication: RHEUMATOID ARTHRITIS
     Dates: start: 20110806
  2. BLINDED DENOSUMAB [Suspect]
     Indication: RHEUMATOID ARTHRITIS
     Dates: start: 20110806

REACTIONS (1)
  - CEREBRAL INFARCTION [None]
